FAERS Safety Report 13141223 (Version 8)
Quarter: 2017Q3

REPORT INFORMATION
  Report Type: Spontaneous
  Country: KR (occurrence: KR)
  Receive Date: 20170123
  Receipt Date: 20170830
  Transmission Date: 20171127
  Serious: Yes (Other)
  Sender: FDA-Public Use
  Company Number: KR-009507513-1701KOR008791

PATIENT
  Age: 65 Year
  Sex: Male
  Weight: 54.6 kg

DRUGS (21)
  1. LASIX [Concomitant]
     Active Substance: FUROSEMIDE
     Indication: PROPHYLAXIS
     Dosage: 20 MG, ONCE CONCENTRATION: 20MG/ML
     Route: 042
     Dates: start: 20160927, end: 20160927
  2. DENOGAN [Concomitant]
     Active Substance: PROPACETAMOL HYDROCHLORIDE
     Dosage: 1 G, ONCE
     Route: 042
     Dates: start: 20160927, end: 20160927
  3. METRONIDAZOLE. [Concomitant]
     Active Substance: METRONIDAZOLE
     Indication: INFECTION
     Dosage: 100 ML, TID
     Route: 042
     Dates: start: 20160918, end: 20160921
  4. CISPLATIN. [Concomitant]
     Active Substance: CISPLATIN
     Indication: ADENOCARCINOMA GASTRIC
     Dosage: 96.6 MG, ONCE, CYCLE 1 CONCENTRATION: 50MG/100ML
     Route: 042
     Dates: start: 20160927, end: 20160927
  5. DEXAMETHASONE. [Concomitant]
     Active Substance: DEXAMETHASONE
     Indication: PROPHYLAXIS OF NAUSEA AND VOMITING
     Dosage: 3.75 MG, BID
     Route: 048
     Dates: start: 20160928, end: 20160928
  6. MANNITOL. [Concomitant]
     Active Substance: MANNITOL
     Indication: PROPHYLAXIS
     Dosage: 100 ML, ONCE STRENGTH: 15% 100ML
     Route: 042
     Dates: start: 20160927, end: 20160927
  7. LEVOMELS [Concomitant]
     Indication: PROPHYLAXIS
     Dosage: 1 G, QD CONCENTRATION: 500MG/5ML
     Route: 042
     Dates: start: 20160919
  8. CHLORPHENIRAMINE MALEATE (+) DIHYDROCODEINE BITARTRATE (+) GUAIFENESIN [Concomitant]
     Indication: PROPHYLAXIS
     Dosage: 1 TABLET, ONCE
     Route: 048
     Dates: start: 20160925, end: 20160925
  9. EMEND (FOSAPREPITANT DIMEGLUMINE) [Suspect]
     Active Substance: FOSAPREPITANT DIMEGLUMINE
     Indication: PROPHYLAXIS OF NAUSEA AND VOMITING
     Dosage: 150 MG, ONCE
     Route: 042
     Dates: start: 20160927, end: 20160927
  10. BESZYME [Concomitant]
     Indication: PROPHYLAXIS
     Dosage: 1 DF, ONCE
     Route: 048
     Dates: start: 20161002, end: 20161002
  11. ZIPAN (TRAMADOL HYDROCHLORIDE) [Concomitant]
     Indication: PAIN PROPHYLAXIS
     Dosage: 100 MG, QD CONCENTRATION: 100MG/2ML
     Route: 042
     Dates: start: 20160918, end: 20160921
  12. MECKOOL [Concomitant]
     Indication: PROPHYLAXIS OF NAUSEA AND VOMITING
     Dosage: 10 MG, ONCE
     Route: 042
     Dates: start: 20161003, end: 20161003
  13. CAPECITABINE. [Concomitant]
     Active Substance: CAPECITABINE
     Indication: ADENOCARCINOMA GASTRIC
     Dosage: 2012.5 MG, BID , CYCLE 1
     Route: 048
     Dates: start: 20160927
  14. ALOXI [Concomitant]
     Active Substance: PALONOSETRON HYDROCHLORIDE
     Indication: NAUSEA
     Dosage: 0.25 MG, ONCE
     Route: 042
     Dates: start: 20160927, end: 20160927
  15. MEGACE [Concomitant]
     Active Substance: MEGESTROL ACETATE
     Indication: PROPHYLAXIS
     Dosage: 10 ML, QD
     Route: 048
     Dates: start: 20160930
  16. POSPENEM [Concomitant]
     Indication: INFECTION
     Dosage: 1 G, TID
     Route: 042
     Dates: start: 20160921, end: 20160930
  17. CEFTRIAXONE SODIUM. [Concomitant]
     Active Substance: CEFTRIAXONE SODIUM
     Indication: INFECTION
     Dosage: 2 G, QD
     Route: 042
     Dates: start: 20160919, end: 20160921
  18. DENOGAN [Concomitant]
     Active Substance: PROPACETAMOL HYDROCHLORIDE
     Indication: PROPHYLAXIS
     Dosage: 1 G, QD
     Route: 042
     Dates: start: 20160918, end: 20160920
  19. DEXAMETHASONE SODIUM PHOSPHATE. [Concomitant]
     Active Substance: DEXAMETHASONE SODIUM PHOSPHATE
     Indication: PROPHYLAXIS OF NAUSEA AND VOMITING
     Dosage: 10 MG, ONCE
     Route: 042
     Dates: start: 20160927, end: 20160927
  20. IRCODON [Concomitant]
     Active Substance: OXYCODONE HYDROCHLORIDE
     Indication: PAIN PROPHYLAXIS
     Dosage: 10 MG, ONCE
     Route: 048
     Dates: start: 20160919, end: 20160919
  21. VANCOCIN [Concomitant]
     Active Substance: VANCOMYCIN HYDROCHLORIDE
     Indication: INFECTION
     Dosage: 1 G, BID
     Route: 042
     Dates: start: 20160919, end: 20160921

REACTIONS (5)
  - Nausea [Recovered/Resolved]
  - Drug ineffective [Unknown]
  - Diarrhoea [Recovered/Resolved]
  - Hyponatraemia [Recovered/Resolved]
  - Hyperkalaemia [Recovered/Resolved]

NARRATIVE: CASE EVENT DATE: 20160927
